FAERS Safety Report 8408447 (Version 3)
Quarter: 2014Q1

REPORT INFORMATION
  Report Type: Spontaneous
  Country: US (occurrence: US)
  Receive Date: 20120216
  Receipt Date: 20140328
  Transmission Date: 20141002
  Serious: Yes (Other)
  Sender: FDA-Public Use
  Company Number: US-BAYER-2012-015012

PATIENT
  Age: 19 Year
  Sex: Female
  Weight: 52 kg

DRUGS (7)
  1. YAZ [Suspect]
     Indication: PREMENSTRUAL SYNDROME
     Dosage: UNK
     Dates: start: 20061214, end: 20070418
  2. YAZ [Suspect]
     Indication: ACNE
     Dosage: UNK
     Dates: start: 20070704, end: 20080324
  3. YASMIN [Suspect]
     Indication: PREMENSTRUAL SYNDROME
     Dosage: UNK
     Dates: start: 20061214, end: 20070418
  4. YASMIN [Suspect]
     Indication: ACNE
     Dosage: UNK
     Dates: start: 20070704, end: 20080324
  5. ADDERALL [Concomitant]
     Dosage: UNK
     Dates: start: 1995
  6. EFFEXOR [Concomitant]
     Dosage: 75 MG, UNK
     Route: 048
     Dates: start: 20080604
  7. TORADOL [Concomitant]
     Dosage: 10 MG, UNK
     Route: 048
     Dates: start: 20080604

REACTIONS (1)
  - Cholecystitis [None]
